FAERS Safety Report 25957349 (Version 1)
Quarter: 2025Q4

REPORT INFORMATION
  Report Type: Spontaneous
  Country: US (occurrence: US)
  Receive Date: 20251024
  Receipt Date: 20251024
  Transmission Date: 20260118
  Serious: No
  Sender: SEPTODONT
  Company Number: US-SEPTODONT-2025019437

PATIENT
  Age: 16 Year
  Sex: Female

DRUGS (2)
  1. SEPTOCAINE AND EPINEPHRINE [Suspect]
     Active Substance: ARTICAINE HYDROCHLORIDE\EPINEPHRINE BITARTRATE
     Indication: Dental local anaesthesia
     Dosage: 0.45 ML. OR ~ 17 MG.
     Route: 065
     Dates: start: 20250210, end: 20250210
  2. Paraject Syringe [Concomitant]
     Indication: Dental local anaesthesia

REACTIONS (4)
  - Gingival ulceration [Recovering/Resolving]
  - Gingival pain [Recovering/Resolving]
  - Gingival swelling [Recovering/Resolving]
  - Discomfort [Recovering/Resolving]

NARRATIVE: CASE EVENT DATE: 20250210
